FAERS Safety Report 16814761 (Version 7)
Quarter: 2020Q3

REPORT INFORMATION
  Report Type: Spontaneous
  Country: US (occurrence: US)
  Receive Date: 20190917
  Receipt Date: 20200828
  Transmission Date: 20201102
  Serious: Yes (Other)
  Sender: FDA-Public Use
  Company Number: US-GILEAD-2019-0428028

PATIENT
  Age: 44 Year
  Sex: Female
  Weight: 126.08 kg

DRUGS (45)
  1. COLCHICINE. [Concomitant]
     Active Substance: COLCHICINE
  2. AZITHROMYCIN ANHYDROUS. [Concomitant]
     Active Substance: AZITHROMYCIN ANHYDROUS
  3. GUAIATUSSIN AC [Concomitant]
     Active Substance: CODEINE PHOSPHATE\GUAIFENESIN
  4. CLOTRIMAZOLE AND BETAMETHASONE [Concomitant]
     Active Substance: BETAMETHASONE\CLOTRIMAZOLE
  5. INDOMETHACIN [INDOMETACIN] [Concomitant]
     Active Substance: INDOMETHACIN
  6. AMLODIPINE BESYLATE. [Concomitant]
     Active Substance: AMLODIPINE BESYLATE
  7. LIDOCAINE. [Concomitant]
     Active Substance: LIDOCAINE
  8. CIPROFLOXACIN. [Concomitant]
     Active Substance: CIPROFLOXACIN
  9. FLUCONAZOLE. [Concomitant]
     Active Substance: FLUCONAZOLE
  10. CICLOPIROX. [Concomitant]
     Active Substance: CICLOPIROX
  11. VITAMIN B12 [VITAMIN B12 NOS] [Concomitant]
     Active Substance: CYANOCOBALAMIN
  12. MUPIROCIN. [Concomitant]
     Active Substance: MUPIROCIN
  13. NORVIR [Concomitant]
     Active Substance: RITONAVIR
  14. DESCOVY [Concomitant]
     Active Substance: EMTRICITABINE\TENOFOVIR ALAFENAMIDE FUMARATE
  15. HYDROCHLOROTHIAZIDE. [Concomitant]
     Active Substance: HYDROCHLOROTHIAZIDE
  16. ALBUTEROL HFA [Concomitant]
     Active Substance: ALBUTEROL SULFATE
  17. SILVADENE [Concomitant]
     Active Substance: SILVER SULFADIAZINE
  18. OXYCODONE AND ACETAMINOPHEN [Concomitant]
     Active Substance: ACETAMINOPHEN\OXYCODONE HYDROCHLORIDE
  19. SULFAMETH/TRIMETH [Concomitant]
     Active Substance: SULFAMETHOXAZOLE\TRIMETHOPRIM
  20. PHISOHEX [TRICLOSAN] [Concomitant]
     Active Substance: TRICLOSAN
  21. CONDYLOX [Concomitant]
     Active Substance: PODOFILOX
  22. ALLOPURINOL. [Concomitant]
     Active Substance: ALLOPURINOL
  23. IBUPROFEN. [Concomitant]
     Active Substance: IBUPROFEN
  24. CELECOXIB. [Concomitant]
     Active Substance: CELECOXIB
  25. TERCONAZOLE. [Concomitant]
     Active Substance: TERCONAZOLE
  26. BENZONATATE. [Concomitant]
     Active Substance: BENZONATATE
  27. ACETAMINOPHEN. [Concomitant]
     Active Substance: ACETAMINOPHEN
  28. NYSTATIN AND TRIAMCINOLONE [Concomitant]
     Active Substance: NYSTATIN\TRIAMCINOLONE ACETONIDE
  29. IMIQUIMOD. [Concomitant]
     Active Substance: IMIQUIMOD
  30. DOK [Concomitant]
     Active Substance: DOCUSATE SODIUM
  31. FERROUS SULFATE. [Concomitant]
     Active Substance: FERROUS SULFATE
  32. CETIRIZINE [Concomitant]
     Active Substance: CETIRIZINE HYDROCHLORIDE
  33. METHYLPREDISOLONE [Concomitant]
     Active Substance: METHYLPREDNISOLONE
  34. PROAIR HFA [Concomitant]
     Active Substance: ALBUTEROL SULFATE
  35. ENOXAPARIN [Concomitant]
     Active Substance: ENOXAPARIN
  36. BUPROPION. [Concomitant]
     Active Substance: BUPROPION
  37. TRUVADA [Suspect]
     Active Substance: EMTRICITABINE\TENOFOVIR DISOPROXIL FUMARATE
     Indication: HIV INFECTION
     Dosage: UNK
     Route: 048
     Dates: start: 201002, end: 201812
  38. PREDNISONE. [Concomitant]
     Active Substance: PREDNISONE
  39. CLINDAMYCIN. [Concomitant]
     Active Substance: CLINDAMYCIN
  40. METRONIDAZOLE. [Concomitant]
     Active Substance: METRONIDAZOLE
  41. LEXIVA [Concomitant]
     Active Substance: FOSAMPRENAVIR CALCIUM
  42. MOMETASONE [Concomitant]
     Active Substance: MOMETASONE
  43. FUROSEMIDE. [Concomitant]
     Active Substance: FUROSEMIDE
  44. DICLOFENAC [Concomitant]
     Active Substance: DICLOFENAC
  45. POLYETHYLENE GLYCOL 3350. [Concomitant]
     Active Substance: POLYETHYLENE GLYCOL 3350

REACTIONS (11)
  - Bone density decreased [Unknown]
  - Economic problem [Unknown]
  - Blood HIV RNA increased [Recovered/Resolved]
  - Meniscus injury [Not Recovered/Not Resolved]
  - Anxiety [Unknown]
  - Osteoporotic fracture [Unknown]
  - Osteoporosis [Not Recovered/Not Resolved]
  - Synovial cyst [Not Recovered/Not Resolved]
  - Anhedonia [Unknown]
  - Pain [Unknown]
  - Emotional distress [Unknown]

NARRATIVE: CASE EVENT DATE: 20110705
